FAERS Safety Report 7372853-9 (Version None)
Quarter: 2011Q1

REPORT INFORMATION
  Report Type: 
  Country: None (occurrence: None)
  Receive Date: 20110324
  Receipt Date: 20110321
  Transmission Date: 20110831
  Serious: Yes (Other)
  Sender: FDA-Public Use
  Company Number: US-PFIZER INC-2011063185

PATIENT
  Sex: Male
  Weight: 79.365 kg

DRUGS (2)
  1. TOVIAZ [Suspect]
     Indication: PROSTATOMEGALY
     Dosage: 4 MG, 1X/DAY
     Route: 048
     Dates: start: 20110316
  2. SILODOSIN [Concomitant]
     Indication: PROSTATIC DISORDER
     Dosage: 8 MG, UNK

REACTIONS (4)
  - PAIN IN EXTREMITY [None]
  - INSOMNIA [None]
  - MUSCULOSKELETAL STIFFNESS [None]
  - CONSTIPATION [None]
